FAERS Safety Report 18218681 (Version 1)
Quarter: 2020Q3

REPORT INFORMATION
  Report Type: Report from Study
  Country: IT (occurrence: IT)
  Receive Date: 20200901
  Receipt Date: 20200901
  Transmission Date: 20201103
  Serious: Yes (Other)
  Sender: FDA-Public Use
  Company Number: IT-PFIZER INC-2020336439

PATIENT
  Age: 42 Year
  Sex: Female

DRUGS (2)
  1. EFFEXOR XR [Suspect]
     Active Substance: VENLAFAXINE HYDROCHLORIDE
     Dosage: 375 MG
     Route: 048
     Dates: start: 20200720, end: 20200720
  2. LARGACTIL [CHLORPROMAZINE HYDROCHLORIDE] [Suspect]
     Active Substance: CHLORPROMAZINE HYDROCHLORIDE
     Dosage: 500 MG
     Route: 048
     Dates: start: 20200720, end: 20200720

REACTIONS (4)
  - Sopor [Unknown]
  - Breath sounds abnormal [Unknown]
  - Drug abuse [Unknown]
  - Speech disorder [Unknown]

NARRATIVE: CASE EVENT DATE: 20200720
